FAERS Safety Report 15313890 (Version 1)
Quarter: 2018Q4

REPORT INFORMATION
  Report Type: Spontaneous
  Country: PT (occurrence: PT)
  Receive Date: 20180824
  Receipt Date: 20180824
  Transmission Date: 20190204
  Serious: Yes (Hospitalization, Other)
  Sender: FDA-Public Use
  Company Number: PT-TEVA-2018-PT-945896

PATIENT
  Age: 26 Year
  Sex: Male

DRUGS (16)
  1. LEVOTHYROXINE. [Suspect]
     Active Substance: LEVOTHYROXINE
     Dosage: 100 MICROGRAM DAILY;
     Route: 065
  2. CABERGOLINE. [Suspect]
     Active Substance: CABERGOLINE
     Dosage: ALTERNATE DAYS
     Route: 065
  3. BOLDENONE [Suspect]
     Active Substance: BOLDENONE
     Dosage: 1200 MG/WEEK
     Route: 065
  4. SPIRONOLACTONE. [Suspect]
     Active Substance: SPIRONOLACTONE
     Route: 065
  5. STANOZOLOL [Suspect]
     Active Substance: STANOZOLOL
     Dosage: 40 MILLIGRAM DAILY;
     Route: 065
  6. FLUOXYMESTERONE [Suspect]
     Active Substance: FLUOXYMESTERONE
     Dosage: 75 MILLIGRAM DAILY;
     Route: 065
  7. LIOTHYRONINE 25 MCG [Suspect]
     Active Substance: LIOTHYRONINE SODIUM
     Dosage: 2 PER DAY
     Route: 065
  8. TRENBOLONE [Suspect]
     Active Substance: TRENBOLONE
     Dosage: 100 MG ALTERNATE DAYS
     Route: 065
  9. TESTOSTERONE CYPIONATE. [Suspect]
     Active Substance: TESTOSTERONE CYPIONATE
     Dosage: 500 MG / WEEK
     Route: 065
  10. MESTEROLONE [Suspect]
     Active Substance: MESTEROLONE
     Dosage: 4-6 PER DAY
     Route: 065
  11. CLENBUTEROL [Suspect]
     Active Substance: CLENBUTEROL
     Dosage: 3 PER DAY
     Route: 065
  12. DROSTANOLONE PROPIONATE [Suspect]
     Active Substance: DROMOSTANOLONE PROPIONATE
     Dosage: 100 MG ALTERNATE DAYS
     Route: 065
  13. ANASTROZOLE. [Suspect]
     Active Substance: ANASTROZOLE
     Dosage: 1 MILLIGRAM DAILY;
     Route: 065
  14. SUSTANON [Suspect]
     Active Substance: TESTOSTERONE
     Dosage: 250 MG/ TWICE WEEKLY
     Route: 065
  15. TESTOSTERONE ENANTHATE. [Suspect]
     Active Substance: TESTOSTERONE ENANTHATE
     Dosage: 250 MILLIGRAM DAILY;
     Route: 065
  16. ALTIZIDE [Suspect]
     Active Substance: ALTHIAZIDE
     Route: 065

REACTIONS (4)
  - Autoimmune thyroiditis [Recovered/Resolved]
  - Diabetes mellitus [Recovered/Resolved]
  - Secondary hypogonadism [Recovered/Resolved]
  - Drug abuse [Unknown]
